FAERS Safety Report 5048466-0 (Version None)
Quarter: 2006Q3

REPORT INFORMATION
  Report Type: 
  Country: None (occurrence: None)
  Receive Date: 20060705
  Receipt Date: 20060621
  Transmission Date: 20061208
  Serious: Yes (Other)
  Sender: FDA-Public Use
  Company Number: 8017550

PATIENT
  Sex: Male
  Weight: 2.35 kg

DRUGS (4)
  1. KEPPRA [Suspect]
     Indication: EPILEPSY
     Dosage: 1500 MG 2/D TRP
     Dates: start: 20051004, end: 20060603
  2. KEPPRA [Suspect]
     Indication: EPILEPSY
     Dosage: 1500 MG 2/D TRM
     Dates: start: 20060609, end: 20060613
  3. FOLIC ACID [Concomitant]
  4. CLOBAZAM [Concomitant]

REACTIONS (4)
  - CAESAREAN SECTION [None]
  - DRUG EXPOSURE BEFORE PREGNANCY [None]
  - DRUG EXPOSURE VIA BREAST MILK [None]
  - SMALL FOR DATES BABY [None]
